FAERS Safety Report 4919880-6 (Version None)
Quarter: 2006Q1

REPORT INFORMATION
  Report Type: 
  Country: None (occurrence: None)
  Receive Date: 20060223
  Receipt Date: 20060215
  Transmission Date: 20060701
  Serious: Yes (Hospitalization)
  Sender: FDA-Public Use
  Company Number: US-JNJFOC-20060204562

PATIENT
  Sex: Female
  Weight: 63.5 kg

DRUGS (16)
  1. DURAGESIC-100 [Suspect]
     Route: 062
  2. AMITRIPTYLINE HCL [Concomitant]
     Route: 048
  3. BACLOFEN [Concomitant]
     Route: 048
  4. CELEXA [Concomitant]
     Indication: DEPRESSION
     Route: 048
  5. COLACE [Concomitant]
     Indication: CONSTIPATION
     Route: 048
  6. CYMBALTA [Concomitant]
     Route: 048
  7. DILAUDID [Concomitant]
     Indication: PAIN
     Route: 048
  8. DILAUDID [Concomitant]
     Route: 042
  9. NEURONTIN [Concomitant]
     Indication: PAIN
     Route: 048
  10. PROVIGIL [Concomitant]
     Route: 048
  11. VIVELLE [Concomitant]
     Route: 062
  12. LIDOCAINE [Concomitant]
     Indication: PAIN
     Route: 062
  13. TENORETIC 100 [Concomitant]
     Route: 048
  14. TENORETIC 100 [Concomitant]
     Indication: BLOOD PRESSURE
     Route: 048
  15. DIAZEPAM [Concomitant]
     Route: 048
  16. CLONIDINE [Concomitant]
     Route: 062

REACTIONS (1)
  - EXTRADURAL ABSCESS [None]
